FAERS Safety Report 8586937-0 (Version None)
Quarter: 2012Q3

REPORT INFORMATION
  Report Type: 
  Country: None (occurrence: None)
  Receive Date: 20120810
  Receipt Date: 20120807
  Transmission Date: 20120928
  Serious: No
  Sender: FDA-Public Use
  Company Number: US-PFIZER INC-2012138315

PATIENT
  Age: 74 Year
  Sex: Female

DRUGS (7)
  1. PREMARIN [Suspect]
     Indication: ATROPHIC VULVOVAGINITIS
  2. DEPAKOTE [Concomitant]
     Dosage: UNK
  3. PROMETRIUM [Concomitant]
     Dosage: UNK
  4. PREMARIN [Suspect]
     Indication: MENOPAUSE
     Dosage: 0.3 MG, 1X/DAY
  5. GABAPENTIN [Concomitant]
     Dosage: UNK
  6. SYNTHROID [Concomitant]
     Dosage: UNK
  7. LORAZEPAM [Concomitant]
     Dosage: UNK

REACTIONS (2)
  - TOOTH DISORDER [None]
  - DRUG HYPERSENSITIVITY [None]
